FAERS Safety Report 9954594 (Version 1)
Quarter: 2014Q1

REPORT INFORMATION
  Report Type: Spontaneous
  Country: CA (occurrence: CA)
  Receive Date: 20140304
  Receipt Date: 20140304
  Transmission Date: 20141002
  Serious: Yes (Other)
  Sender: FDA-Public Use
  Company Number: CA-ELI_LILLY_AND_COMPANY-CA201402007470

PATIENT
  Sex: Male

DRUGS (3)
  1. HUMULIN NPH [Suspect]
     Indication: PRODUCT USED FOR UNKNOWN INDICATION
     Dosage: UNK
     Route: 065
     Dates: start: 201401
  2. CRESTOR [Suspect]
     Indication: PRODUCT USED FOR UNKNOWN INDICATION
     Route: 065
  3. CARVEDILOL [Suspect]
     Indication: HEART RATE INCREASED
     Dosage: UNK
     Route: 065

REACTIONS (6)
  - Coronary artery thrombosis [Unknown]
  - Wheezing [Unknown]
  - Dyspnoea [Unknown]
  - Heart rate decreased [Unknown]
  - Nonspecific reaction [Unknown]
  - Rash [Unknown]
